FAERS Safety Report 14290990 (Version 5)
Quarter: 2019Q1

REPORT INFORMATION
  Report Type: Report from Study
  Country: BE (occurrence: BE)
  Receive Date: 20171215
  Receipt Date: 20190321
  Transmission Date: 20190417
  Serious: Yes (Death, Hospitalization)
  Sender: FDA-Public Use
  Company Number: BE-PFIZER INC-2017527680

PATIENT
  Age: 71 Year
  Sex: Female
  Weight: 58 kg

DRUGS (21)
  1. IRINOTECAN HCL [Suspect]
     Active Substance: IRINOTECAN HYDROCHLORIDE
     Dosage: 290 MG, CYCLIC, QCY
     Route: 042
     Dates: start: 20171108, end: 20171108
  2. FOLINIC ACID [Suspect]
     Active Substance: LEUCOVORIN
     Indication: COLORECTAL CANCER METASTATIC
     Dosage: UNK, CYCLIC
     Route: 042
     Dates: start: 20171004, end: 20171004
  3. ALOXI [Concomitant]
     Active Substance: PALONOSETRON HYDROCHLORIDE
     Dosage: 0.25 MG, AS NEEDED
     Route: 042
     Dates: start: 20171004, end: 20180103
  4. IMODIUM [Concomitant]
     Active Substance: LOPERAMIDE HYDROCHLORIDE
     Dosage: 10 MG, AS NEEDED
     Route: 048
     Dates: start: 20171018, end: 20180128
  5. MOVICOL [Concomitant]
     Active Substance: POLYETHYLENE GLYCOL 3350\POTASSIUM CHLORIDE\SODIUM BICARBONATE\SODIUM CHLORIDE
     Dosage: 13.8 G, 1X/DAY
     Route: 048
     Dates: start: 20161109, end: 20180128
  6. FLUOROURACIL. [Suspect]
     Active Substance: FLUOROURACIL
     Dosage: 3930 MG, CYCLIC, QCY
     Route: 041
     Dates: start: 20171108, end: 20171108
  7. PROLIA [Concomitant]
     Active Substance: DENOSUMAB
     Dosage: 1 ML, UNK
     Route: 058
     Dates: start: 20171018, end: 20180122
  8. PANTOPRAZOLE [Concomitant]
     Active Substance: PANTOPRAZOLE
     Dosage: 20 MG, ALTERNATE DAY
     Route: 048
     Dates: start: 20170927
  9. AFLIBERCEPT [Suspect]
     Active Substance: AFLIBERCEPT
     Indication: COLORECTAL CANCER METASTATIC
     Dosage: UNK, CYCLIC, QCY
     Route: 042
     Dates: start: 20171004, end: 20171004
  10. AFLIBERCEPT [Suspect]
     Active Substance: AFLIBERCEPT
     Dosage: UNK, CYCLIC, ,QCY
     Route: 042
     Dates: start: 20171108, end: 20171108
  11. ATROPINE. [Concomitant]
     Active Substance: ATROPINE
     Dosage: 0.25 MG, AS NEEDED
     Route: 058
     Dates: start: 20171004, end: 20180103
  12. CACIT D3 [Concomitant]
     Active Substance: CALCIUM\CHOLECALCIFEROL
     Dosage: 1000 MG, 1X/DAY
     Route: 048
  13. FLUOROURACIL. [Suspect]
     Active Substance: FLUOROURACIL
     Dosage: 650 MG, CYCLIC, QCY
     Route: 040
     Dates: start: 20171108, end: 20171108
  14. DEXAMETHASONE. [Concomitant]
     Active Substance: DEXAMETHASONE
     Dosage: 10 MG, AS NEEDED
     Route: 042
     Dates: start: 20171004, end: 20180103
  15. FLUOROURACIL. [Suspect]
     Active Substance: FLUOROURACIL
     Indication: COLORECTAL CANCER METASTATIC
     Dosage: UNK UNK, CYCLIC, QCY
     Route: 041
     Dates: start: 20171004, end: 20171004
  16. FLUOROURACIL. [Suspect]
     Active Substance: FLUOROURACIL
     Dosage: UNK UNK, CYCLIC QCY
     Route: 040
     Dates: start: 20171004, end: 20171004
  17. DAFALGAN FORTE [Concomitant]
     Dosage: 4 G, AS NEEDED
     Route: 048
     Dates: start: 20161109, end: 20180118
  18. IRINOTECAN HCL [Suspect]
     Active Substance: IRINOTECAN HYDROCHLORIDE
     Indication: COLORECTAL CANCER METASTATIC
     Dosage: UNK UNK, CYCLIC, QCY
     Route: 042
     Dates: start: 20171004, end: 20171004
  19. BETMIGA [Concomitant]
     Active Substance: MIRABEGRON
     Dosage: 50 MG, 1X/DAY
     Route: 048
     Dates: start: 20171018, end: 20181107
  20. FEROGRAD-500 [Concomitant]
     Dosage: 525 MG, 1X/DAY
     Route: 048
     Dates: start: 20161109, end: 20170122
  21. FOLINIC ACID [Suspect]
     Active Substance: LEUCOVORIN
     Dosage: 650 MG, CYCLIC, QCY
     Route: 042
     Dates: start: 20171108, end: 20171108

REACTIONS (3)
  - Decreased appetite [Not Recovered/Not Resolved]
  - General physical health deterioration [Fatal]
  - Hypocalcaemia [Not Recovered/Not Resolved]

NARRATIVE: CASE EVENT DATE: 20171108
